FAERS Safety Report 5446205-2 (Version None)
Quarter: 2007Q3

REPORT INFORMATION
  Report Type: 
  Country: None (occurrence: None)
  Receive Date: 20070731
  Receipt Date: 20070313
  Transmission Date: 20080115
  Serious: Yes (Life-Threatening)
  Sender: FDA-Public Use
  Company Number: US-2007-007296

PATIENT
  Age: 74 Year
  Sex: Male
  Weight: 88.4 kg

DRUGS (10)
  1. MAGNEVIST [Suspect]
     Indication: NUCLEAR MAGNETIC RESONANCE IMAGING BRAIN
     Dosage: 15 ML, 1 DOSE, INTRAVENOUS
     Route: 042
     Dates: start: 20070226, end: 20070226
  2. HYDROCHLOROTHIAZIDE [Concomitant]
  3. POTASSIUM CHLORIDE [Concomitant]
  4. LOVASTATIN [Concomitant]
  5. COZAAR [Concomitant]
  6. LABETALOL HCL [Concomitant]
  7. FELODIPINE [Concomitant]
  8. ASPIRIN [Concomitant]
  9. PREVACID [Concomitant]
  10. CLONIDINE [Concomitant]

REACTIONS (6)
  - DYSPNOEA [None]
  - FEELING ABNORMAL [None]
  - LOSS OF CONSCIOUSNESS [None]
  - MYOCARDIAL INFARCTION [None]
  - PRURITUS [None]
  - RESPIRATORY ARREST [None]
